FAERS Safety Report 8794211 (Version 2)
Quarter: 2012Q4

REPORT INFORMATION
  Report Type: 
  Country: US (occurrence: US)
  Receive Date: 20120918
  Receipt Date: 20121002
  Transmission Date: 20130627
  Serious: No
  Sender: FDA-Public Use
  Company Number: US-009507513-1209USA004449

PATIENT
  Sex: Female

DRUGS (4)
  1. PEGINTRON [Suspect]
     Indication: HEPATITIS C
     Dosage: UNK
     Dates: start: 20120904
  2. PEGINTRON [Suspect]
     Indication: HEPATITIS C
  3. REBETOL [Suspect]
     Indication: HEPATITIS C
     Dosage: 5 UNK, UNK
     Dates: start: 20120904
  4. REBETOL [Suspect]
     Dosage: 2 UNK, UNK

REACTIONS (9)
  - Injection site erythema [Unknown]
  - Pelvic pain [Unknown]
  - Injection site erythema [Unknown]
  - Fatigue [Unknown]
  - Headache [Unknown]
  - Haemoglobin decreased [Unknown]
  - Decreased appetite [Unknown]
  - Aggression [Unknown]
  - Haemoglobin decreased [Unknown]
